FAERS Safety Report 12232923 (Version 1)
Quarter: 2016Q2

REPORT INFORMATION
  Report Type: Spontaneous
  Country: US (occurrence: US)
  Receive Date: 20160402
  Receipt Date: 20160402
  Transmission Date: 20160815
  Serious: Yes (Other)
  Sender: FDA-Public Use
  Company Number: US-TEVA-647480USA

PATIENT
  Sex: Female

DRUGS (1)
  1. COPAXONE [Suspect]
     Active Substance: GLATIRAMER ACETATE
     Indication: MULTIPLE SCLEROSIS
     Route: 065

REACTIONS (7)
  - Pharyngeal oedema [Unknown]
  - Lip swelling [Unknown]
  - Swelling face [Unknown]
  - Anaphylactic reaction [Unknown]
  - Asthma [Unknown]
  - Hypersensitivity [Unknown]
  - Urticaria [Unknown]
